FAERS Safety Report 6833809-5 (Version None)
Quarter: 2010Q3

REPORT INFORMATION
  Report Type: 
  Country: None (occurrence: None)
  Receive Date: 20100712
  Receipt Date: 20070402
  Transmission Date: 20110219
  Serious: No
  Sender: FDA-Public Use
  Company Number: US-PFIZER INC-2007027590

PATIENT
  Sex: Female
  Weight: 66.68 kg

DRUGS (4)
  1. CHANTIX [Suspect]
     Indication: SMOKING CESSATION THERAPY
     Dates: start: 20070321, end: 20070326
  2. PLETAL [Concomitant]
     Indication: BRONCHITIS CHRONIC
  3. LIPITOR [Concomitant]
     Indication: BLOOD CHOLESTEROL ABNORMAL
  4. XOPENEX [Concomitant]
     Indication: RESPIRATORY THERAPY

REACTIONS (2)
  - DIZZINESS [None]
  - NAUSEA [None]
